FAERS Safety Report 17257431 (Version 2)
Quarter: 2020Q1

REPORT INFORMATION
  Report Type: Spontaneous
  Country: FR (occurrence: FR)
  Receive Date: 20200110
  Receipt Date: 20200210
  Transmission Date: 20200409
  Serious: Yes (Hospitalization, Other)
  Sender: FDA-Public Use
  Company Number: NVSC2020FR002783

PATIENT
  Age: 10 Year
  Sex: Female
  Weight: 25.5 kg

DRUGS (10)
  1. KARDEGIC [Concomitant]
     Active Substance: ASPIRIN DL-LYSINE
     Indication: CARDIAC OPERATION
     Dosage: UNK
     Route: 048
     Dates: start: 20170708
  2. NUROFENPRO [Suspect]
     Active Substance: IBUPROFEN
     Indication: PYREXIA
     Dosage: 750 MG, QD (250 MG TID)
     Route: 048
     Dates: start: 20170731, end: 20170804
  3. AMBISOME [Suspect]
     Active Substance: AMPHOTERICIN B
     Indication: PYREXIA
     Dosage: 75 MG, QD
     Route: 041
     Dates: start: 20170726, end: 20170804
  4. GENTAMICINE PANPHARMA [Suspect]
     Active Substance: GENTAMICIN
     Indication: PYREXIA
     Dosage: 125 MG, QD
     Route: 042
     Dates: start: 20170718, end: 20170804
  5. VANCOMYCINE MYLAN [Suspect]
     Active Substance: VANCOMYCIN
     Indication: PYREXIA
     Dosage: 1250 MG, QD (625 MG, BID)
     Route: 041
     Dates: start: 20170718, end: 20170804
  6. BACTRIM [Suspect]
     Active Substance: SULFAMETHOXAZOLE\TRIMETHOPRIM
     Indication: PROPHYLAXIS
     Dosage: 2 DF, QW (TIW (0.8571 DF))
     Route: 048
     Dates: start: 20170729, end: 20170807
  7. PRIVIGEN [Suspect]
     Active Substance: HUMAN IMMUNOGLOBULIN G
     Indication: IMMUNOSUPPRESSION
     Dosage: 3 DF, QD (1 DF, 3 IN 1 CYCLE)
     Route: 065
     Dates: start: 20170722, end: 20170724
  8. LASILIX [Suspect]
     Active Substance: FUROSEMIDE
     Indication: PROPHYLAXIS
     Dosage: 25 MG, QD
     Route: 048
     Dates: start: 20170717, end: 20170804
  9. ZOPHREN [Suspect]
     Active Substance: ONDANSETRON
     Indication: VOMITING
     Dosage: 1 DF (5 DOSES, 1 DF, 1 ON DEMAND)
     Route: 065
     Dates: start: 20170722, end: 20170806
  10. FERROSTRANE [Suspect]
     Active Substance: SODIUM FEREDETATE
     Indication: MICROCYTIC ANAEMIA
     Dosage: 0.5 DF, QD
     Route: 048
     Dates: start: 20170720, end: 20170807

REACTIONS (6)
  - Lymphadenopathy [Recovered/Resolved]
  - Antibiotic level above therapeutic [Unknown]
  - Rash [Recovered/Resolved]
  - Pancytopenia [Recovered/Resolved]
  - Pyrexia [Recovered/Resolved]
  - Renal failure [Unknown]

NARRATIVE: CASE EVENT DATE: 20170724
